FAERS Safety Report 5119911-7 (Version None)
Quarter: 2006Q3

REPORT INFORMATION
  Report Type: 
  Country: None (occurrence: None)
  Receive Date: 20060929
  Receipt Date: 20060906
  Transmission Date: 20061208
  Serious: Yes (Death)
  Sender: FDA-Public Use
  Company Number: WAES 0609ITA00010

PATIENT
  Age: 82 Year
  Sex: Female

DRUGS (2)
  1. FOSAMAX [Suspect]
     Indication: OSTEOPOROSIS
     Dosage: 70 MG/WKY PO
     Route: 048
     Dates: start: 20020101
  2. CALCIUM GLUCONATE [Concomitant]

REACTIONS (9)
  - CALCINOSIS [None]
  - DRUG INEFFECTIVE [None]
  - FALL [None]
  - FEMUR FRACTURE [None]
  - INTERVERTEBRAL DISC DISORDER [None]
  - OSTEOARTHRITIS [None]
  - PULMONARY EMBOLISM [None]
  - SPINAL COMPRESSION FRACTURE [None]
  - VASCULAR CALCIFICATION [None]
